FAERS Safety Report 9643707 (Version 1)
Quarter: 2013Q4

REPORT INFORMATION
  Report Type: Spontaneous
  Country: US (occurrence: US)
  Receive Date: 20131024
  Receipt Date: 20131024
  Transmission Date: 20140711
  Serious: Yes (Other)
  Sender: FDA-Public Use
  Company Number: US-PFIZER INC-2013302391

PATIENT
  Sex: Male

DRUGS (2)
  1. DILANTIN [Suspect]
     Dosage: UNK
  2. CELEBREX [Interacting]
     Dosage: UNK

REACTIONS (2)
  - Convulsion [Unknown]
  - Drug interaction [Unknown]
